FAERS Safety Report 19290396 (Version 2)
Quarter: 2022Q2

REPORT INFORMATION
  Report Type: Spontaneous
  Country: US (occurrence: US)
  Receive Date: 20210521
  Receipt Date: 20220526
  Transmission Date: 20220721
  Serious: No
  Sender: FDA-Public Use
  Company Number: US-RADIUS HEALTH INC.-2021US001506

PATIENT
  Age: 77 Year
  Sex: Female

DRUGS (4)
  1. TYMLOS [Suspect]
     Active Substance: ABALOPARATIDE
     Indication: Osteoporosis
     Dosage: 80 MCG, QD
     Route: 058
     Dates: start: 20210126, end: 20210411
  2. TYMLOS [Suspect]
     Active Substance: ABALOPARATIDE
     Dosage: 1/2 DOSE OF 80 MCG QD
     Route: 058
     Dates: start: 20210412
  3. TYMLOS [Suspect]
     Active Substance: ABALOPARATIDE
     Dosage: 80 MCG, QD
     Route: 058
  4. ENTOCORT [Concomitant]
     Active Substance: BUDESONIDE
     Indication: Product used for unknown indication
     Dosage: UNK
     Dates: start: 20210409

REACTIONS (5)
  - Decreased appetite [Recovering/Resolving]
  - Headache [Not Recovered/Not Resolved]
  - Nausea [Recovering/Resolving]
  - Diarrhoea [Recovering/Resolving]
  - Off label use [Recovered/Resolved]

NARRATIVE: CASE EVENT DATE: 20210412
